FAERS Safety Report 6234430-2 (Version None)
Quarter: 2009Q2

REPORT INFORMATION
  Report Type: 
  Country: None (occurrence: None)
  Receive Date: 20090618
  Receipt Date: 20090608
  Transmission Date: 20091009
  Serious: Yes (Other)
  Sender: FDA-Public Use
  Company Number: JP-ROCHE-637364

PATIENT
  Age: 69 Year
  Sex: Female

DRUGS (2)
  1. COPEGUS [Suspect]
     Indication: HEPATITIS
     Route: 048
     Dates: start: 20081024
  2. PEGASYS [Suspect]
     Indication: HEPATITIS
     Route: 058
     Dates: start: 20081024, end: 20090430

REACTIONS (1)
  - VENOUS OCCLUSION [None]
